FAERS Safety Report 22369228 (Version 1)
Quarter: 2023Q2

REPORT INFORMATION
  Report Type: Spontaneous
  Country: TW (occurrence: TW)
  Receive Date: 20230525
  Receipt Date: 20230525
  Transmission Date: 20230721
  Serious: Yes (Death)
  Sender: FDA-Public Use
  Company Number: TW-STRIDES ARCOLAB LIMITED-2023SP007484

PATIENT
  Age: 54 Year
  Sex: Female

DRUGS (6)
  1. FINGOLIMOD [Suspect]
     Active Substance: FINGOLIMOD
     Indication: Relapsing-remitting multiple sclerosis
     Dosage: 0.5 MILLIGRAM PER DAY
     Route: 065
     Dates: start: 2012
  2. AZATHIOPRINE [Suspect]
     Active Substance: AZATHIOPRINE
     Indication: Neuromyelitis optica spectrum disorder
     Dosage: 50 MILLIGRAM PER DAY
     Route: 065
     Dates: start: 2021
  3. METHYLPREDNISOLONE [Concomitant]
     Active Substance: METHYLPREDNISOLONE
     Indication: Relapsing-remitting multiple sclerosis
     Dosage: UNK; (PULSE THERAPY)
     Route: 065
  4. METHYLPREDNISOLONE [Concomitant]
     Active Substance: METHYLPREDNISOLONE
     Indication: Neuromyelitis optica spectrum disorder
     Dosage: 1 GRAM (PULSE THERAPY)
     Route: 065
  5. PREDNISOLONE [Concomitant]
     Active Substance: PREDNISOLONE
     Indication: Product used for unknown indication
     Dosage: UNK
     Route: 065
  6. INTERFERON BETA [Concomitant]
     Active Substance: INTERFERON BETA
     Indication: Relapsing-remitting multiple sclerosis
     Dosage: UNK
     Route: 065
     Dates: start: 2008, end: 2012

REACTIONS (6)
  - IIIrd nerve disorder [Fatal]
  - Withdrawal syndrome [Fatal]
  - Altered state of consciousness [Fatal]
  - Acute respiratory failure [Fatal]
  - Pyrexia [Fatal]
  - Off label use [Unknown]
